FAERS Safety Report 18907734 (Version 1)
Quarter: 2021Q1

REPORT INFORMATION
  Report Type: Spontaneous
  Country: US (occurrence: US)
  Receive Date: 20210217
  Receipt Date: 20210217
  Transmission Date: 20210420
  Serious: No
  Sender: FDA-Public Use
  Company Number: US-AMGEN-USA-20190408139

PATIENT
  Age: 49 Year
  Sex: Female

DRUGS (5)
  1. OTEZLA [Suspect]
     Active Substance: APREMILAST
     Dosage: 30 MILLIGRAM, BID
     Route: 048
     Dates: start: 20191121
  2. LEVONORGESTREL. [Concomitant]
     Active Substance: LEVONORGESTREL
  3. OTEZLA [Suspect]
     Active Substance: APREMILAST
     Indication: PSORIASIS
     Dosage: 60 MILLIGRAM, BID
     Route: 048
     Dates: start: 201902
  4. ORENCIA [Concomitant]
     Active Substance: ABATACEPT
  5. SPIRONOLACTON [Concomitant]
     Active Substance: SPIRONOLACTONE

REACTIONS (1)
  - Psoriasis [Not Recovered/Not Resolved]

NARRATIVE: CASE EVENT DATE: 20190419
